FAERS Safety Report 9732761 (Version 1)
Quarter: 2013Q4

REPORT INFORMATION
  Report Type: Spontaneous
  Country: JP (occurrence: JP)
  Receive Date: 20131204
  Receipt Date: 20131204
  Transmission Date: 20140711
  Serious: Yes (Hospitalization)
  Sender: FDA-Public Use
  Company Number: JP-GLAXOSMITHKLINE-B0949636A

PATIENT
  Age: 62 Year
  Sex: Male

DRUGS (6)
  1. REQUIP [Suspect]
     Indication: PARKINSON^S DISEASE
     Dosage: 2MG PER DAY
     Route: 048
  2. REQUIP [Suspect]
     Indication: PARKINSON^S DISEASE
     Dosage: 4MG PER DAY
     Route: 048
  3. LEVODOPA [Concomitant]
     Route: 065
  4. MADOPAR [Concomitant]
     Route: 048
  5. ARTANE [Concomitant]
     Route: 048
  6. DOPS [Concomitant]
     Route: 048

REACTIONS (3)
  - Neuroleptic malignant syndrome [Unknown]
  - Agitation [Unknown]
  - Overdose [Unknown]
